FAERS Safety Report 23101229 (Version 2)
Quarter: 2023Q4

REPORT INFORMATION
  Report Type: Spontaneous
  Country: JP (occurrence: JP)
  Receive Date: 20231024
  Receipt Date: 20231031
  Transmission Date: 20240109
  Serious: Yes (Hospitalization, Other)
  Sender: FDA-Public Use
  Company Number: JP-ELI_LILLY_AND_COMPANY-JP202309009819

PATIENT
  Age: 68 Year
  Sex: Female
  Weight: 42 kg

DRUGS (2)
  1. CYRAMZA [Suspect]
     Active Substance: RAMUCIRUMAB
     Indication: Gastric cancer stage IV
     Dosage: 380 MG, CYCLICAL
     Route: 041
     Dates: start: 20221117
  2. ABRAXANE [Concomitant]
     Active Substance: PACLITAXEL
     Indication: Gastric cancer stage IV
     Dosage: 100 MG, UNKNOWN
     Route: 041
     Dates: start: 20221117

REACTIONS (2)
  - Nasal septum perforation [Not Recovered/Not Resolved]
  - Epistaxis [Recovered/Resolved]

NARRATIVE: CASE EVENT DATE: 20230129
